FAERS Safety Report 4416521-1 (Version None)
Quarter: 2004Q3

REPORT INFORMATION
  Report Type: 
  Country: None (occurrence: None)
  Receive Date: 20040802
  Receipt Date: 20040720
  Transmission Date: 20050211
  Serious: No
  Sender: FDA-Public Use
  Company Number: RS004613-J

PATIENT
  Age: 63 Year
  Sex: Male

DRUGS (4)
  1. PARIET (RABEPRAZOLE) (RABEPRAZOLE SODIUM) [Suspect]
     Indication: GASTRIC ULCER
     Dosage: 2 DOSAGE FORMS, ORAL
     Route: 048
     Dates: start: 20040507, end: 20040519
  2. PROMAC (POLAPREZINC [Suspect]
     Indication: GASTRIC ULCER
     Dosage: 1 GM, ORAL
     Route: 048
     Dates: start: 20040507, end: 20040519
  3. FERROMIA (FERROUS CITRATE) [Concomitant]
  4. SENNOSIDE (SENNOSIDE A) [Concomitant]

REACTIONS (3)
  - ANASTOMOTIC ULCER HAEMORRHAGE [None]
  - BLOOD BILIRUBIN INCREASED [None]
  - BLOOD LACTATE DEHYDROGENASE INCREASED [None]
